FAERS Safety Report 9152584 (Version 1)
Quarter: 2013Q1

REPORT INFORMATION
  Report Type: Spontaneous
  Country: GB (occurrence: GB)
  Receive Date: 20130308
  Receipt Date: 20130308
  Transmission Date: 20140127
  Serious: Yes (Other)
  Sender: FDA-Public Use
  Company Number: GB-FOUGERA-2013FO000057

PATIENT
  Sex: Male
  Weight: 153 kg

DRUGS (7)
  1. DICLOFENAC SODIUM [Suspect]
     Indication: PRODUCT USED FOR UNKNOWN INDICATION
  2. HUMIRA [Suspect]
     Indication: PSORIASIS
     Route: 058
     Dates: start: 20120216
  3. HUMIRA [Suspect]
     Indication: ARTHRITIS
     Route: 058
     Dates: start: 20120216
  4. HUMIRA [Suspect]
     Indication: PSORIASIS
     Route: 058
     Dates: start: 20121024
  5. HUMIRA [Suspect]
     Indication: ARTHRITIS
     Route: 058
     Dates: start: 20121024
  6. FLUOXETINE [Concomitant]
     Indication: DEPRESSION
     Route: 048
     Dates: start: 20111012
  7. METHOTREXATE [Concomitant]
     Indication: PSORIASIS

REACTIONS (8)
  - Cyanosis [Unknown]
  - Nephrolithiasis [Unknown]
  - Hypersensitivity [Unknown]
  - Blood pressure decreased [Unknown]
  - Dyspnoea [Recovered/Resolved]
  - Pruritus generalised [Unknown]
  - Renal pain [Recovered/Resolved]
  - Asthenia [Unknown]
